FAERS Safety Report 24367773 (Version 1)
Quarter: 2024Q3

REPORT INFORMATION
  Report Type: Spontaneous
  Country: US (occurrence: US)
  Receive Date: 20240926
  Receipt Date: 20240926
  Transmission Date: 20241017
  Serious: Yes (Other)
  Sender: PURDUE
  Company Number: US-NAPPMUNDI-GBR-2024-0119808

PATIENT
  Age: 58 Year
  Sex: Female

DRUGS (2)
  1. OXYCODONE HYDROCHLORIDE [Suspect]
     Active Substance: OXYCODONE HYDROCHLORIDE
     Indication: Arthralgia
     Dosage: FIVE YEARS AGO
     Route: 065
  2. OXYCODONE HYDROCHLORIDE [Suspect]
     Active Substance: OXYCODONE HYDROCHLORIDE
     Indication: Back pain
     Dosage: TAPERED DOWN
     Route: 065
     Dates: start: 2023

REACTIONS (5)
  - Suicidal ideation [Unknown]
  - Drug dependence [Unknown]
  - Nausea [Unknown]
  - Drug withdrawal syndrome [Unknown]
  - Depression [Unknown]
